FAERS Safety Report 5843301-2 (Version None)
Quarter: 2008Q3

REPORT INFORMATION
  Report Type: 
  Country: None (occurrence: None)
  Receive Date: 20080812
  Receipt Date: 20080812
  Transmission Date: 20090109
  Serious: No
  Sender: FDA-Public Use
  Company Number: None

PATIENT
  Sex: Female

DRUGS (5)
  1. FOSAMAX PLUS D [Suspect]
     Indication: OSTEOPOROSIS
     Dosage: 1 TABLET WEEKLY PO
     Route: 048
     Dates: start: 20071008, end: 20080225
  2. PROPRANOLOL [Concomitant]
  3. FIORINAL [Concomitant]
  4. EXCEDERIN MIGRAINE [Concomitant]
  5. CALTRATE PLUS D [Concomitant]

REACTIONS (4)
  - BACK PAIN [None]
  - JOB DISSATISFACTION [None]
  - MUSCULOSKELETAL PAIN [None]
  - SLEEP DISORDER [None]
